FAERS Safety Report 19675352 (Version 5)
Quarter: 2021Q4

REPORT INFORMATION
  Report Type: Spontaneous
  Country: NO (occurrence: US)
  Receive Date: 20210809
  Receipt Date: 20211120
  Transmission Date: 20220303
  Serious: Yes (Other)
  Sender: FDA-Public Use
  Company Number: None

PATIENT

DRUGS (6)
  1. HUMIRA [Suspect]
     Active Substance: ADALIMUMAB
     Indication: Psoriasis
     Dosage: ADDITIONAL INFO: IXEKIZUMAB: 80MG; UNIT=NOT AVAILABLE
     Route: 065
  2. ENBREL [Suspect]
     Active Substance: ETANERCEPT
     Indication: Psoriasis
     Dosage: ADDITIONAL INFO: IXEKIZUMAB: 80MG; UNIT=NOT AVAILABLE
     Route: 058
  3. REMICADE [Suspect]
     Active Substance: INFLIXIMAB
     Indication: Psoriasis
     Dosage: ADDITIONAL INFO: IXEKIZUMAB: 80MG
     Route: 042
  4. REMICADE [Suspect]
     Active Substance: INFLIXIMAB
     Dosage: UNK
     Route: 042
  5. TALTZ [Suspect]
     Active Substance: IXEKIZUMAB
     Indication: Psoriasis
     Dosage: 80 MG, MONTHLY, ADDITIONAL INFO: IXEKIZUMAB: 80MG
     Route: 058
     Dates: start: 2006
  6. INFLIXIMAB [Suspect]
     Active Substance: INFLIXIMAB
     Indication: Psoriasis
     Dosage: UNK
     Route: 042

REACTIONS (2)
  - Dental caries [Not Recovered/Not Resolved]
  - Therapeutic product effect decreased [Recovered/Resolved]
